FAERS Safety Report 4621870-8 (Version None)
Quarter: 2005Q1

REPORT INFORMATION
  Report Type: 
  Country: None (occurrence: None)
  Receive Date: 20050329
  Receipt Date: 20050308
  Transmission Date: 20050727
  Serious: Yes (Death, Other)
  Sender: FDA-Public Use
  Company Number: JP-BRISTOL-MYERS SQUIBB COMPANY-12889341

PATIENT
  Age: 64 Year
  Sex: Female

DRUGS (6)
  1. PACLITAXEL [Suspect]
     Indication: BREAST CANCER
     Dosage: PRIOR DOSE: 100 MG/M2 10FEB05 TO 17FEB05
     Route: 042
     Dates: start: 20050224, end: 20050224
  2. CALONAL [Concomitant]
     Indication: ARTHRALGIA
     Route: 048
     Dates: start: 20050220
  3. CIPROXAN [Concomitant]
     Indication: PYREXIA
     Route: 048
     Dates: start: 20050302
  4. NORVASC [Concomitant]
     Indication: HYPERTENSION
     Route: 048
     Dates: start: 20000101
  5. PANALDINE [Concomitant]
     Indication: CEREBRAL INFARCTION
     Route: 048
     Dates: start: 20000101
  6. SELBEX [Concomitant]
     Indication: GASTRITIS
     Route: 048
     Dates: start: 20000101

REACTIONS (5)
  - FEBRILE NEUTROPENIA [None]
  - LOSS OF CONSCIOUSNESS [None]
  - MYOCARDIAL ISCHAEMIA [None]
  - NEUROPATHY [None]
  - RESPIRATORY ARREST [None]
